FAERS Safety Report 20737723 (Version 1)
Quarter: 2022Q2

REPORT INFORMATION
  Report Type: Report from Study
  Country: US (occurrence: US)
  Receive Date: 20220422
  Receipt Date: 20220422
  Transmission Date: 20220721
  Serious: Yes (Hospitalization, Other)
  Sender: FDA-Public Use
  Company Number: US-BRISTOL-MYERS SQUIBB COMPANY-2022-020345

PATIENT
  Age: 58 Year
  Sex: Male
  Weight: 145 kg

DRUGS (1)
  1. REVLIMID [Suspect]
     Active Substance: LENALIDOMIDE
     Indication: Plasma cell myeloma
     Dosage: 15 MG , 21 DAYS ON ORALLY, 7 DAYS OFF
     Route: 048
     Dates: start: 201501

REACTIONS (2)
  - Product dose omission issue [Unknown]
  - Arthropathy [Unknown]
